FAERS Safety Report 25774497 (Version 1)
Quarter: 2025Q3

REPORT INFORMATION
  Report Type: Spontaneous
  Country: US (occurrence: US)
  Receive Date: 20250908
  Receipt Date: 20250908
  Transmission Date: 20251021
  Serious: Yes (Other)
  Sender: NEUROCRINE BIOSCIENCES
  Company Number: US-NEUROCRINE BIOSCIENCES INC.-2025NBI11374

PATIENT
  Sex: Female

DRUGS (14)
  1. INGREZZA [Suspect]
     Active Substance: VALBENAZINE DITOSYLATE
     Indication: Tardive dyskinesia
     Route: 065
     Dates: start: 20250715
  2. TRAZODONE [Concomitant]
     Active Substance: TRAZODONE HYDROCHLORIDE
  3. INSULIN NOS [Concomitant]
     Active Substance: INSULIN NOS
  4. PEPCID [Concomitant]
     Active Substance: FAMOTIDINE
  5. OZEMPIC [Concomitant]
     Active Substance: SEMAGLUTIDE
  6. MELATONIN [Concomitant]
     Active Substance: MELATONIN
  7. GABAPENTIN [Concomitant]
     Active Substance: GABAPENTIN
  8. FARXIGA [Concomitant]
     Active Substance: DAPAGLIFLOZIN PROPANEDIOL
  9. ELIQUIS [Concomitant]
     Active Substance: APIXABAN
  10. OMEPRAZOLE [Concomitant]
     Active Substance: OMEPRAZOLE
  11. LISINOPRIL [Concomitant]
     Active Substance: LISINOPRIL
  12. LIPITOR [Concomitant]
     Active Substance: ATORVASTATIN CALCIUM
  13. ABILIFY [Concomitant]
     Active Substance: ARIPIPRAZOLE
  14. THIORIDAZINE [Concomitant]
     Active Substance: THIORIDAZINE

REACTIONS (1)
  - Parkinson^s disease [Unknown]
